FAERS Safety Report 7154237-1 (Version None)
Quarter: 2010Q4

REPORT INFORMATION
  Report Type: 
  Country: None (occurrence: None)
  Receive Date: 20101213
  Receipt Date: 20101129
  Transmission Date: 20110411
  Serious: Yes (Life-Threatening, Hospitalization)
  Sender: FDA-Public Use
  Company Number: AU-TYCO HEALTHCARE/MALLINCKRODT-T201002388

PATIENT
  Age: 50 Year
  Sex: Female

DRUGS (2)
  1. EXALGO [Suspect]
     Dosage: 32 MG, UNK
  2. EXALGO [Suspect]
     Dosage: 40 MG, UNK

REACTIONS (1)
  - NARCOTIC INTOXICATION [None]
